FAERS Safety Report 9788004 (Version 2)
Quarter: 2013Q4

REPORT INFORMATION
  Report Type: Spontaneous
  Country: JP (occurrence: JP)
  Receive Date: 20131230
  Receipt Date: 20131230
  Transmission Date: 20140711
  Serious: Yes (Hospitalization)
  Sender: FDA-Public Use
  Company Number: JP-ORION CORPORATION ORION PHARMA-ENT 2013-0199

PATIENT
  Sex: 0

DRUGS (3)
  1. COMTAN [Suspect]
     Indication: PARKINSON^S DISEASE
     Dosage: TAKEN IN THE MORNING AND IN THE EVENING
     Route: 048
     Dates: end: 20131112
  2. MENESIT [Concomitant]
     Route: 048
  3. MENESIT [Concomitant]
     Route: 048

REACTIONS (2)
  - Burning sensation [Recovered/Resolved]
  - Restless legs syndrome [Unknown]
